FAERS Safety Report 8478062-4 (Version None)
Quarter: 2012Q2

REPORT INFORMATION
  Report Type: 
  Country: None (occurrence: None)
  Receive Date: 20120402
  Receipt Date: 20120111
  Transmission Date: 20120825
  Serious: Yes (Other)
  Sender: FDA-Public Use
  Company Number: 316052USA

PATIENT
  Sex: Female

DRUGS (1)
  1. LEVETIRACETAM [Suspect]
     Dosage: 500 MG

REACTIONS (3)
  - GRAND MAL CONVULSION [None]
  - CONVULSION [None]
  - DRUG INEFFECTIVE [None]
